FAERS Safety Report 8236852-7 (Version None)
Quarter: 2012Q1

REPORT INFORMATION
  Report Type: 
  Country: None (occurrence: None)
  Receive Date: 20120327
  Receipt Date: 20111213
  Transmission Date: 20120608
  Serious: No
  Sender: FDA-Public Use
  Company Number: US-GLAXOSMITHKLINE-A0937087A

PATIENT
  Age: 52 Year
  Sex: Female

DRUGS (16)
  1. ACIPHEX [Concomitant]
  2. PROAIR HFA [Concomitant]
  3. FIORICET [Concomitant]
  4. REQUIP [Concomitant]
  5. MAXALT [Concomitant]
  6. SOMA [Concomitant]
  7. ALLERGY MEDICATION [Concomitant]
  8. FLONASE [Concomitant]
  9. CARBIDOPA + LEVODOPA [Concomitant]
  10. CENTELLA ASIATICA [Concomitant]
  11. LAMICTAL [Suspect]
     Indication: BIPOLAR DISORDER
     Dosage: 200MG PER DAY
     Route: 048
     Dates: start: 20100901
  12. CALAMINE LOTION [Concomitant]
  13. SINGULAIR [Concomitant]
  14. SEROQUEL [Concomitant]
  15. ADVAIR DISKUS 100/50 [Concomitant]
  16. MUSCLE RELAXER [Concomitant]

REACTIONS (7)
  - THROAT IRRITATION [None]
  - DEHYDRATION [None]
  - CONTUSION [None]
  - LYME DISEASE [None]
  - HEADACHE [None]
  - RASH [None]
  - RASH MACULAR [None]
